FAERS Safety Report 20176505 (Version 1)
Quarter: 2021Q4

REPORT INFORMATION
  Report Type: Spontaneous
  Country: US (occurrence: None)
  Receive Date: 20211210
  Receipt Date: 20211210
  Transmission Date: 20220303
  Serious: No
  Sender: FDA-Public Use
  Company Number: None

PATIENT
  Age: 68 Year
  Sex: Female
  Weight: 55 kg

DRUGS (10)
  1. CAPECITABINE [Suspect]
     Active Substance: CAPECITABINE
     Indication: Colon cancer
     Dosage: OTHER FREQUENCY : BID FOR 14/21 DAYS;?
     Route: 048
     Dates: start: 20210621
  2. Sinemet 25-100mg [Concomitant]
  3. CLONAZEPAM [Concomitant]
     Active Substance: CLONAZEPAM
  4. LEVOTHYROXINE [Concomitant]
     Active Substance: LEVOTHYROXINE
  5. Multivitamin Adult [Concomitant]
  6. Mirapex 0.25mg [Concomitant]
  7. Eye Drops A/C [Concomitant]
  8. IBUPROFEN [Concomitant]
     Active Substance: IBUPROFEN
  9. Vitamin B12 100mcg [Concomitant]
  10. Potassium gluconate 550mg [Concomitant]

REACTIONS (2)
  - Peripheral swelling [None]
  - Peripheral swelling [None]

NARRATIVE: CASE EVENT DATE: 20211210
